FAERS Safety Report 16307680 (Version 2)
Quarter: 2019Q2

REPORT INFORMATION
  Report Type: Report from Study
  Country: None (occurrence: AR)
  Receive Date: 20190514
  Receipt Date: 20190611
  Transmission Date: 20190711
  Serious: Yes (Hospitalization, Other)
  Sender: FDA-Public Use
  Company Number: AR-ABBVIE-19K-007-2779252-00

PATIENT
  Age: 37 Year
  Sex: Female

DRUGS (4)
  1. HUMIRA [Suspect]
     Active Substance: ADALIMUMAB
     Dosage: HUMIRA DOSE INCREASED
     Route: 058
  2. OMEPRAZOLE. [Concomitant]
     Active Substance: OMEPRAZOLE
     Indication: PRODUCT USED FOR UNKNOWN INDICATION
     Dosage: 1 AT NIGHT AND 1 IN THE MORNING
  3. HUMIRA [Suspect]
     Active Substance: ADALIMUMAB
     Indication: COLITIS ULCERATIVE
     Route: 058
     Dates: start: 20170926
  4. FLU VACCINE [Concomitant]
     Active Substance: INFLUENZA VIRUS VACCINE
     Indication: PRODUCT USED FOR UNKNOWN INDICATION
     Dates: start: 201903

REACTIONS (17)
  - Pyrexia [Recovered/Resolved]
  - Diarrhoea [Unknown]
  - Emotional disorder [Unknown]
  - Pyrexia [Recovering/Resolving]
  - Swelling [Not Recovered/Not Resolved]
  - Gastrointestinal disorder [Unknown]
  - Haemorrhage [Not Recovered/Not Resolved]
  - Ovarian cyst [Unknown]
  - Spinal pain [Unknown]
  - Colitis ulcerative [Unknown]
  - Genital disorder female [Unknown]
  - Oropharyngeal pain [Recovered/Resolved]
  - Cholelithiasis [Unknown]
  - Abdominal pain upper [Recovering/Resolving]
  - Drug ineffective [Unknown]
  - Dyspnoea [Unknown]
  - Influenza [Unknown]

NARRATIVE: CASE EVENT DATE: 20190318
